FAERS Safety Report 7161391-4 (Version None)
Quarter: 2010Q4

REPORT INFORMATION
  Report Type: 
  Country: None (occurrence: None)
  Receive Date: 20101201
  Receipt Date: 20101117
  Transmission Date: 20110411
  Serious: Yes (Other)
  Sender: FDA-Public Use
  Company Number: 2010AP002446

PATIENT
  Sex: Male

DRUGS (4)
  1. PRAVASTATIN SODIUM [Suspect]
     Indication: ANGINA PECTORIS
     Dates: start: 20101022, end: 20101103
  2. PREGABALIN [Suspect]
     Indication: TRIGEMINAL NEURALGIA
     Dosage: 75 MG;BID
  3. ASPIRIN [Concomitant]
  4. ATENOLOL [Concomitant]

REACTIONS (3)
  - CONFUSIONAL STATE [None]
  - DRUG INTERACTION [None]
  - SOMNOLENCE [None]
